FAERS Safety Report 7692208 (Version 4)
Quarter: 2013Q4

REPORT INFORMATION
  Report Type: Spontaneous
  Country: US (occurrence: US)
  Receive Date: 20101205
  Receipt Date: 20131118
  Transmission Date: 20140711
  Serious: Yes (Hospitalization)
  Sender: FDA-Public Use
  Company Number: US-BAYER-201041568NA

PATIENT
  Age: 28 Year
  Sex: Female

DRUGS (7)
  1. YAZ [Suspect]
     Indication: ACNE
  2. YASMIN [Suspect]
     Indication: ACNE
  3. AVALIDE [Concomitant]
     Dosage: 50 MG, UNK
  4. METFORMIN [Concomitant]
     Dosage: 250 MG, UNK
  5. TRAMADOL [Concomitant]
     Indication: MUSCLE SPASMS
     Dosage: 50 MG, UNK
  6. CRESTOR [Concomitant]
     Dosage: 10 MG, UNK
  7. CARISOPRODOL [Concomitant]
     Dosage: 350 MG, UNK

REACTIONS (3)
  - Gallbladder disorder [None]
  - Cholecystitis [None]
  - Pain [None]
